FAERS Safety Report 9119215 (Version 3)
Quarter: 2013Q3

REPORT INFORMATION
  Report Type: Report from Study
  Country: DE (occurrence: DE)
  Receive Date: 20130207
  Receipt Date: 20130816
  Transmission Date: 20140515
  Serious: Yes (Hospitalization)
  Sender: FDA-Public Use
  Company Number: DE-ABBOTT-13P-062-1046662-00

PATIENT
  Sex: Female

DRUGS (2)
  1. HUMIRA [Suspect]
     Indication: PSORIATIC ARTHROPATHY
     Dosage: LONGER THAN EOW
     Route: 058
     Dates: start: 20071201, end: 20120928
  2. HUMIRA [Suspect]
     Dosage: INJECTION FREQUENCY LONGER THAN EVERY 2 WEEKS
     Route: 058
     Dates: start: 20130603

REACTIONS (1)
  - Shortened cervix [Not Recovered/Not Resolved]
